FAERS Safety Report 9565878 (Version 1)
Quarter: 2013Q3

REPORT INFORMATION
  Report Type: Spontaneous
  Country: GR (occurrence: GR)
  Receive Date: 20130930
  Receipt Date: 20130930
  Transmission Date: 20140515
  Serious: Yes (Hospitalization)
  Sender: FDA-Public Use
  Company Number: PHHY2013GR107879

PATIENT
  Age: 30 Month
  Sex: 0

DRUGS (1)
  1. OLANZAPINE [Suspect]

REACTIONS (8)
  - Toxicity to various agents [Unknown]
  - Depressed level of consciousness [Recovered/Resolved]
  - Miosis [Unknown]
  - Consciousness fluctuating [Recovered/Resolved]
  - Agitation [Unknown]
  - Somnolence [Unknown]
  - Unresponsive to stimuli [Unknown]
  - Accidental exposure to product by child [Recovered/Resolved]
